FAERS Safety Report 5542113-7 (Version None)
Quarter: 2007Q4

REPORT INFORMATION
  Report Type: 
  Country: None (occurrence: None)
  Receive Date: 20071210
  Receipt Date: 20061213
  Transmission Date: 20080405
  Serious: No
  Sender: FDA-Public Use
  Company Number: US-AMGEN-US196446

PATIENT
  Sex: Male
  Weight: 96.7 kg

DRUGS (12)
  1. ENBREL [Suspect]
     Indication: RHEUMATOID ARTHRITIS
     Route: 058
     Dates: start: 20060822, end: 20061101
  2. ENBREL [Suspect]
     Indication: PSORIATIC ARTHROPATHY
  3. KETOCONAZOLE [Concomitant]
     Route: 065
     Dates: start: 20060515
  4. RITONAVIR [Concomitant]
     Route: 065
     Dates: start: 20050330
  5. FOSAMPRENAVIR [Concomitant]
     Route: 065
     Dates: start: 20050330
  6. STAVUDINE [Concomitant]
     Route: 065
     Dates: start: 20050330
  7. TEGASEROD MALEATE [Concomitant]
     Route: 065
     Dates: start: 20051027
  8. RISPERIDONE [Concomitant]
     Route: 065
     Dates: start: 20050330
  9. OMEPRAZOLE [Concomitant]
     Route: 065
     Dates: start: 20051027
  10. NAPROSYN [Concomitant]
     Route: 065
     Dates: start: 20060515
  11. ABACAVIR [Concomitant]
     Route: 065
     Dates: start: 20050925
  12. CALCIUM WITH VITAMIN D [Concomitant]
     Route: 065
     Dates: start: 20050330

REACTIONS (2)
  - PRURITUS ANI [None]
  - PRURITUS GENITAL [None]
